FAERS Safety Report 6260334-5 (Version None)
Quarter: 2009Q3

REPORT INFORMATION
  Report Type: 
  Country: None (occurrence: None)
  Receive Date: 20090708
  Receipt Date: 20090625
  Transmission Date: 20100115
  Serious: Yes (Hospitalization, Other)
  Sender: FDA-Public Use
  Company Number: PHHY2009BR25773

PATIENT
  Sex: Male

DRUGS (6)
  1. DIOVAN [Suspect]
     Indication: HYPERTENSION
     Dosage: 160 MG, QD
     Route: 048
     Dates: start: 20070101
  2. MONOCORDIL [Concomitant]
     Dosage: 20 MG, BID
     Route: 048
  3. PENTOXIFYLLINE [Concomitant]
     Indication: VEIN DISORDER
     Dosage: 1 TABLET A DAY
  4. AAS [Concomitant]
     Dosage: AT LUNCH
  5. SIMVASTATIN [Concomitant]
     Dosage: 1 TABLET AT NIGHT
  6. CARBIDOPA AND LEVODOPA [Concomitant]
     Dosage: 1/4 TABLET 4 TIMES A DAY
     Route: 048

REACTIONS (6)
  - BLOOD PRESSURE INADEQUATELY CONTROLLED [None]
  - BLOOD PRESSURE SYSTOLIC INCREASED [None]
  - FALL [None]
  - FEMUR FRACTURE [None]
  - PROSTHESIS IMPLANTATION [None]
  - RESPIRATORY DISORDER [None]
